FAERS Safety Report 19744384 (Version 1)
Quarter: 2021Q3

REPORT INFORMATION
  Report Type: Spontaneous
  Country: US (occurrence: US)
  Receive Date: 20210825
  Receipt Date: 20210825
  Transmission Date: 20211014
  Serious: No
  Sender: FDA-Public Use
  Company Number: US-PERRIGO-21US007499

PATIENT
  Age: 60 Year
  Sex: Female
  Weight: 90.7 kg

DRUGS (13)
  1. EVAMIST [Suspect]
     Active Substance: ESTRADIOL
     Dosage: 1.53 MG BID AND ADDITIONAL 1.53 MG IN THE MORNING PRN
     Route: 061
     Dates: start: 20210511, end: 20210517
  2. LYRICA [Concomitant]
     Active Substance: PREGABALIN
     Indication: NEURALGIA
     Dosage: UNKNOWN, UNKNOWN
     Route: 065
     Dates: start: 2013
  3. LISINOPRIL. [Concomitant]
     Active Substance: LISINOPRIL
     Indication: HYPERTENSION
     Dosage: 10 MG, UNKNOWN
     Route: 065
     Dates: start: 202003
  4. TRAMADOL. [Concomitant]
     Active Substance: TRAMADOL
     Indication: PAIN
     Dosage: UNKNOWN, PRN
     Route: 065
  5. PROGESTERONE. [Concomitant]
     Active Substance: PROGESTERONE
     Indication: PROPHYLAXIS
     Dosage: UNKNOWN, LAST 12 DAS OF THE MONTH
     Route: 065
  6. PROGESTERONE. [Concomitant]
     Active Substance: PROGESTERONE
     Indication: SUPPLEMENTATION THERAPY
  7. ATORVASTATIN [Concomitant]
     Active Substance: ATORVASTATIN
     Indication: BLOOD CHOLESTEROL INCREASED
     Dosage: UNKNOWN, UNKNOWN
     Route: 065
     Dates: start: 202003
  8. COREG [Concomitant]
     Active Substance: CARVEDILOL
     Indication: HYPERTENSION
     Dosage: UNKNOWN, UNKNOWN
     Route: 065
     Dates: start: 202003
  9. TYLENOL [Concomitant]
     Active Substance: ACETAMINOPHEN
     Indication: PAIN
     Dosage: UNKNOWN, PRN
     Route: 065
     Dates: start: 202006
  10. EVAMIST [Suspect]
     Active Substance: ESTRADIOL
     Indication: HORMONE REPLACEMENT THERAPY
     Dosage: 3.06 MG EVERY MORNING; 1.53 MG NIGHTLY
     Route: 061
  11. EVAMIST [Suspect]
     Active Substance: ESTRADIOL
     Indication: HOT FLUSH
     Dosage: 1.53 MG BID AND ADDITIONAL 1.53 MG IN THE MORNING PRN
     Route: 061
     Dates: end: 201911
  12. NORTRIPTYLINE [Concomitant]
     Active Substance: NORTRIPTYLINE
     Indication: INSOMNIA
     Dosage: 25 MG, UNKNOWN
     Route: 065
     Dates: start: 2018
  13. METFORMIN [Concomitant]
     Active Substance: METFORMIN HYDROCHLORIDE
     Indication: DIABETES MELLITUS
     Dosage: 500, BID
     Route: 065
     Dates: start: 2015

REACTIONS (10)
  - Application site exfoliation [Not Recovered/Not Resolved]
  - Accidental exposure to product [Recovered/Resolved]
  - Application site rash [Not Recovered/Not Resolved]
  - Application site pruritus [Not Recovered/Not Resolved]
  - Application site dryness [Not Recovered/Not Resolved]
  - Inappropriate schedule of product administration [Recovered/Resolved]
  - Product administered at inappropriate site [Recovered/Resolved]
  - Application site erythema [Not Recovered/Not Resolved]
  - Skin wrinkling [Not Recovered/Not Resolved]
  - Burning sensation [Not Recovered/Not Resolved]

NARRATIVE: CASE EVENT DATE: 201911
